FAERS Safety Report 5340843-3 (Version None)
Quarter: 2007Q2

REPORT INFORMATION
  Report Type: 
  Country: None (occurrence: None)
  Receive Date: 20070531
  Receipt Date: 20070524
  Transmission Date: 20071010
  Serious: Yes (Life-Threatening)
  Sender: FDA-Public Use
  Company Number: GB-ABBOTT-07P-167-0369457-00

PATIENT
  Age: 37 Year
  Sex: Female
  Weight: 57.4 kg

DRUGS (5)
  1. HUMIRA [Suspect]
     Indication: JUVENILE ARTHRITIS
     Dates: start: 20060817, end: 20070202
  2. IDOMETHACIN [Concomitant]
     Indication: JUVENILE ARTHRITIS
  3. PREDNISOLONE [Concomitant]
     Indication: JUVENILE ARTHRITIS
  4. CODEINE SUL TAB [Concomitant]
     Indication: ANALGESIC EFFECT
  5. CITALOPRAM HYDROBROMIDE [Concomitant]
     Indication: PAIN

REACTIONS (1)
  - INTERSTITIAL LUNG DISEASE [None]
